FAERS Safety Report 26136499 (Version 1)
Quarter: 2025Q4

REPORT INFORMATION
  Report Type: Spontaneous
  Country: CN (occurrence: CN)
  Receive Date: 20251209
  Receipt Date: 20251209
  Transmission Date: 20260118
  Serious: Yes (Hospitalization)
  Sender: MERCK SHARP & DOHME LLC
  Company Number: CN-009507513-2355973

PATIENT
  Age: 39 Year
  Sex: Female

DRUGS (1)
  1. PEMBROLIZUMAB [Suspect]
     Active Substance: PEMBROLIZUMAB
     Indication: Tongue neoplasm malignant stage unspecified
     Route: 041
     Dates: start: 20250411, end: 20251010

REACTIONS (5)
  - Arthralgia [Recovering/Resolving]
  - Myalgia [Unknown]
  - Dysstasia [Unknown]
  - Asthenia [Unknown]
  - Synovitis [Recovering/Resolving]

NARRATIVE: CASE EVENT DATE: 20251010
